FAERS Safety Report 8312682-2 (Version None)
Quarter: 2012Q2

REPORT INFORMATION
  Report Type: 
  Country: None (occurrence: None)
  Receive Date: 20120426
  Receipt Date: 20120419
  Transmission Date: 20120825
  Serious: Yes (Hospitalization, Other)
  Sender: FDA-Public Use
  Company Number: FR-BIOGENIDEC-2009BI038994

PATIENT
  Age: 33 Year
  Sex: Female

DRUGS (3)
  1. FLU VACCINE [Concomitant]
     Indication: ANTIVIRAL PROPHYLAXIS
  2. AMANTADINE HCL [Concomitant]
     Indication: ASTHENIA
  3. TYSABRI [Suspect]
     Indication: MULTIPLE SCLEROSIS
     Route: 042
     Dates: start: 20080909

REACTIONS (1)
  - THYROID ATROPHY [None]
